FAERS Safety Report 6119384-1 (Version None)
Quarter: 2009Q1

REPORT INFORMATION
  Report Type: 
  Country: None (occurrence: None)
  Receive Date: 20090316
  Receipt Date: 20090306
  Transmission Date: 20090719
  Serious: Yes (Hospitalization)
  Sender: FDA-Public Use
  Company Number: A0708779A

PATIENT
  Age: 63 Year
  Sex: Male
  Weight: 109.1 kg

DRUGS (7)
  1. AVANDIA [Suspect]
     Indication: DIABETES MELLITUS
     Dosage: 8MG PER DAY
     Route: 048
     Dates: start: 20030701
  2. GLUCOPHAGE [Concomitant]
  3. METFORMIN HCL [Concomitant]
  4. ALTACE [Concomitant]
  5. TRICOR [Concomitant]
  6. VYTORIN [Concomitant]
  7. LOVAZA [Concomitant]

REACTIONS (5)
  - ARRHYTHMIA [None]
  - CARDIAC DISORDER [None]
  - CARDIAC FAILURE CONGESTIVE [None]
  - CORONARY ARTERY DISEASE [None]
  - MYOCARDIAL INFARCTION [None]
